FAERS Safety Report 16775637 (Version 1)
Quarter: 2019Q4

REPORT INFORMATION
  Report Type: Spontaneous
  Country: US (occurrence: US)
  Receive Date: 20190905
  Receipt Date: 20190905
  Transmission Date: 20200122
  Serious: No
  Sender: FDA-Public Use
  Company Number: None

PATIENT
  Age: 34 Year
  Sex: Male
  Weight: 72.9 kg

DRUGS (7)
  1. DEXTROAMPHET SACCHARAT, AMPHET ASPARTATE, DEXTROAMPHET SULFATE AND AMPHET SULFAT [Suspect]
     Active Substance: AMPHETAMINE ASPARTATE\AMPHETAMINE SULFATE\DEXTROAMPHETAMINE SACCHARATE\DEXTROAMPHETAMINE SULFATE
     Indication: ATTENTION DEFICIT/HYPERACTIVITY DISORDER
     Dosage: ?          QUANTITY:1 TABLET(S);?
     Route: 048
     Dates: start: 20190822, end: 20190905
  2. MUCINEX [Concomitant]
     Active Substance: GUAIFENESIN
  3. CLONZAPAM [Concomitant]
     Active Substance: CLONAZEPAM
  4. ADDERALL [Concomitant]
     Active Substance: AMPHETAMINE ASPARTATE\AMPHETAMINE SULFATE\DEXTROAMPHETAMINE SACCHARATE\DEXTROAMPHETAMINE SULFATE
  5. SUDAFED PE CONGESTION [Concomitant]
     Active Substance: PHENYLEPHRINE HYDROCHLORIDE
  6. BIKTARVY [Concomitant]
     Active Substance: BICTEGRAVIR SODIUM\EMTRICITABINE\TENOFOVIR ALAFENAMIDE FUMARATE
  7. WAL-DRYL [Concomitant]
     Active Substance: DIPHENHYDRAMINE HYDROCHLORIDE

REACTIONS (14)
  - Product substitution issue [None]
  - Disturbance in attention [None]
  - Headache [None]
  - Libido decreased [None]
  - Psychomotor hyperactivity [None]
  - Mood swings [None]
  - Pain [None]
  - Rhinorrhoea [None]
  - Diarrhoea [None]
  - Irritability [None]
  - Dysarthria [None]
  - Fatigue [None]
  - Pyrexia [None]
  - Sinusitis [None]

NARRATIVE: CASE EVENT DATE: 20190826
